FAERS Safety Report 23284637 (Version 2)
Quarter: 2023Q4

REPORT INFORMATION
  Report Type: Spontaneous
  Country: ES (occurrence: ES)
  Receive Date: 20231211
  Receipt Date: 20231227
  Transmission Date: 20240109
  Serious: Yes (Other)
  Sender: FDA-Public Use
  Company Number: ES-BAYER-2023A171705

PATIENT
  Age: 74 Year
  Sex: Male

DRUGS (1)
  1. XOFIGO [Suspect]
     Active Substance: RADIUM RA-223 DICHLORIDE
     Indication: Hormone-refractory prostate cancer
     Dosage: UNK
     Dates: start: 201710, end: 201710

REACTIONS (6)
  - Metastases to pelvis [None]
  - Metastases to spine [None]
  - Hepatic cirrhosis [None]
  - Portal hypertension [None]
  - Metastases to bone [None]
  - Stent placement [None]
